FAERS Safety Report 16236540 (Version 2)
Quarter: 2021Q4

REPORT INFORMATION
  Report Type: Spontaneous
  Country: ES (occurrence: ES)
  Receive Date: 20190425
  Receipt Date: 20211011
  Transmission Date: 20220303
  Serious: Yes (Other)
  Sender: FDA-Public Use
  Company Number: ES-AEMPS-477374

PATIENT
  Age: 48 Year
  Sex: Female

DRUGS (5)
  1. IBUPROFEN [Suspect]
     Active Substance: IBUPROFEN
     Indication: Product used for unknown indication
     Dosage: UNK, (T DOES NOT APPEAR IN ELECTRONIC MEDICAL RECORD)
     Route: 048
     Dates: start: 2018
  2. BISOLVON [Concomitant]
     Active Substance: BROMHEXINE HYDROCHLORIDE
     Indication: Product used for unknown indication
     Dosage: UNK, IT DOES NOT APPEAR IN ELECTRONIC MEDICAL RECORD
     Route: 048
  3. Cinfatos [Concomitant]
     Indication: Product used for unknown indication
     Dosage: UNK, (IT DOES NOT APPEAR IN ELECTRONIC MEDICAL RECORD)
     Route: 048
     Dates: start: 2018
  4. ENALAPRIL [Concomitant]
     Active Substance: ENALAPRIL
     Indication: Hypertension
     Dosage: 5 MILLIGRAM, DAILY
     Route: 048
     Dates: start: 2018
  5. Vincigrip [Concomitant]
     Indication: Product used for unknown indication
     Dosage: UNK, (IT DOES NOT APPEAR IN ELECTRONIC MEDICAL RECORD)
     Route: 048

REACTIONS (1)
  - Toxic skin eruption [Recovered/Resolved]

NARRATIVE: CASE EVENT DATE: 20180101
